FAERS Safety Report 7004969-0 (Version None)
Quarter: 2010Q3

REPORT INFORMATION
  Report Type: 
  Country: None (occurrence: None)
  Receive Date: 20100920
  Receipt Date: 20100920
  Transmission Date: 20110219
  Serious: Yes (Hospitalization)
  Sender: FDA-Public Use
  Company Number: None

PATIENT
  Age: 39 Year
  Sex: Female
  Weight: 83.1897 kg

DRUGS (2)
  1. CYTOXAN [Suspect]
  2. ACTINOMYCIN [Suspect]

REACTIONS (1)
  - ABDOMINAL PAIN [None]
